FAERS Safety Report 8156255-3 (Version None)
Quarter: 2012Q1

REPORT INFORMATION
  Report Type: 
  Country: None (occurrence: None)
  Receive Date: 20120103
  Receipt Date: 20111007
  Transmission Date: 20120608
  Serious: No
  Sender: FDA-Public Use
  Company Number: AE-2011-000762

PATIENT
  Age: 36 Year
  Sex: Male

DRUGS (6)
  1. GARDASIL (VACCINES) [Concomitant]
  2. INCIVEK [Suspect]
     Dosage: 2250 MG (750 MG, 1 IN 8 HR), ORAL
     Route: 048
     Dates: start: 20110718
  3. RIBAVIRIN [Concomitant]
  4. LAVOXYL (LEVOTHYROXINE SODIUM) [Concomitant]
  5. PEGASYS [Concomitant]
  6. IBUPROFEN [Concomitant]

REACTIONS (2)
  - ANORECTAL DISCOMFORT [None]
  - ANAL PRURITUS [None]
